FAERS Safety Report 8003500-0 (Version None)
Quarter: 2011Q4

REPORT INFORMATION
  Report Type: 
  Country: None (occurrence: None)
  Receive Date: 20111222
  Receipt Date: 20111220
  Transmission Date: 20120403
  Serious: No
  Sender: FDA-Public Use
  Company Number: US-PFIZER INC-2011310799

PATIENT
  Sex: Female
  Weight: 127 kg

DRUGS (4)
  1. TRIAMTERENE [Interacting]
     Indication: DIURETIC THERAPY
     Dosage: UNK
     Dates: start: 20111217, end: 20111219
  2. METFORMIN [Concomitant]
     Indication: DIABETES MELLITUS
     Dosage: 500 MG, 1X/DAY
  3. CELEBREX [Suspect]
     Indication: ARTHRITIS
     Dosage: 200 MG, 1X/DAY
     Dates: start: 20111217, end: 20111219
  4. NEXIUM [Concomitant]
     Indication: GASTROOESOPHAGEAL REFLUX DISEASE
     Dosage: UNK

REACTIONS (3)
  - LABELLED DRUG-DRUG INTERACTION MEDICATION ERROR [None]
  - ABDOMINAL PAIN UPPER [None]
  - DIARRHOEA [None]
